FAERS Safety Report 7998656-X (Version None)
Quarter: 2011Q4

REPORT INFORMATION
  Report Type: 
  Country: None (occurrence: None)
  Receive Date: 20111221
  Receipt Date: 20111127
  Transmission Date: 20120403
  Serious: Yes (Other)
  Sender: FDA-Public Use
  Company Number: IL-MERCK-1112USA01487

PATIENT

DRUGS (1)
  1. PROPECIA [Suspect]
     Route: 048

REACTIONS (1)
  - PROSTATE CANCER [None]
